FAERS Safety Report 20848116 (Version 1)
Quarter: 2022Q2

REPORT INFORMATION
  Report Type: Spontaneous
  Country: IT (occurrence: IT)
  Receive Date: 20220519
  Receipt Date: 20220519
  Transmission Date: 20220720
  Serious: Yes (Other)
  Sender: FDA-Public Use
  Company Number: IT-TEVA-2022-IT-2037012

PATIENT
  Age: 41 Year
  Sex: Male

DRUGS (15)
  1. ETOPOSIDE [Suspect]
     Active Substance: ETOPOSIDE
     Indication: Diffuse large B-cell lymphoma
     Dosage: VACOP-B REGIMEN
     Route: 065
  2. ETOPOSIDE [Suspect]
     Active Substance: ETOPOSIDE
     Indication: Bone marrow conditioning regimen
     Dosage: BEAM REGIMEN
     Route: 065
  3. CISPLATIN [Suspect]
     Active Substance: CISPLATIN
     Indication: Diffuse large B-cell lymphoma
     Dosage: DHAP REGIMEN
     Route: 065
  4. DOXORUBICIN [Suspect]
     Active Substance: DOXORUBICIN
     Indication: Diffuse large B-cell lymphoma
     Dosage: VACOP-B REGIMEN
     Route: 065
  5. RITUXIMAB [Suspect]
     Active Substance: RITUXIMAB
     Indication: Diffuse large B-cell lymphoma
     Dosage: DHAP REGIMEN
     Route: 065
  6. RITUXIMAB [Suspect]
     Active Substance: RITUXIMAB
     Dosage: MAINTAINANCE THERAPY FOR 8 COURSES
     Route: 065
  7. CYTARABINE [Suspect]
     Active Substance: CYTARABINE
     Indication: Diffuse large B-cell lymphoma
     Dosage: DHAP REGIMEN
     Route: 065
  8. CYTARABINE [Suspect]
     Active Substance: CYTARABINE
     Indication: Bone marrow conditioning regimen
     Dosage: BEAM REGIMEN
     Route: 065
  9. DEXAMETHASONE [Suspect]
     Active Substance: DEXAMETHASONE
     Indication: Diffuse large B-cell lymphoma
     Dosage: DHAP REGIMEN
     Route: 065
  10. PREDNISONE [Suspect]
     Active Substance: PREDNISONE
     Indication: Diffuse large B-cell lymphoma
     Dosage: VACOP-B REGIMEN
     Route: 065
  11. VINCRISTINE [Suspect]
     Active Substance: VINCRISTINE
     Indication: Diffuse large B-cell lymphoma
     Dosage: VACOP-B REGIMEN
     Route: 065
  12. BLEOMYCIN [Suspect]
     Active Substance: BLEOMYCIN SULFATE
     Indication: Diffuse large B-cell lymphoma
     Dosage: VACOP-B REGIMEN
     Route: 065
  13. CYCLOPHOSPHAMIDE [Suspect]
     Active Substance: CYCLOPHOSPHAMIDE
     Indication: Diffuse large B-cell lymphoma
     Dosage: VACOP-B REGIMEN
     Route: 065
  14. CARMUSTINE [Suspect]
     Active Substance: CARMUSTINE
     Indication: Bone marrow conditioning regimen
     Dosage: BEAM REGIMEN
     Route: 065
  15. MELPHALAN [Suspect]
     Active Substance: MELPHALAN
     Indication: Bone marrow conditioning regimen
     Dosage: BEAM REGIMEN
     Route: 065

REACTIONS (1)
  - Pneumocystis jirovecii pneumonia [Recovered/Resolved]
